FAERS Safety Report 7072486-8 (Version None)
Quarter: 2010Q4

REPORT INFORMATION
  Report Type: 
  Country: None (occurrence: None)
  Receive Date: 20101028
  Receipt Date: 20101028
  Transmission Date: 20110411
  Serious: Yes (Hospitalization, Other)
  Sender: FDA-Public Use
  Company Number: None

PATIENT
  Sex: Female
  Weight: 39.4584 kg

DRUGS (26)
  1. MYCOPHENOLATE MOFETIL [Suspect]
  2. PROGRAF [Concomitant]
  3. PREDNISONE [Concomitant]
  4. VALCYTE [Concomitant]
  5. SPORANOX [Concomitant]
  6. BACTRIM DS [Concomitant]
  7. NYSTATIN [Concomitant]
  8. ZYRTEC [Concomitant]
  9. CALCIUM [Concomitant]
  10. LORTAB [Concomitant]
  11. MIRALAX [Concomitant]
  12. CREON [Concomitant]
  13. LEXAPRO [Concomitant]
  14. AQUAADEKS [Concomitant]
  15. PRILOSEC [Concomitant]
  16. PHENERGAN [Concomitant]
  17. CYCLOSPORINE [Concomitant]
  18. LEVETIRACETAM [Concomitant]
  19. VALACYCLOVIR [Concomitant]
  20. VALGANCICLOVIR HCL [Concomitant]
  21. VORICONAZOLE [Concomitant]
  22. PROPRANOLOL [Concomitant]
  23. CLONIDINE [Concomitant]
  24. LORTAB [Concomitant]
  25. MORPHINE [Concomitant]
  26. BENADRYL [Concomitant]

REACTIONS (6)
  - CONVULSION [None]
  - ENCEPHALITIS [None]
  - HEADACHE [None]
  - HERPES SIMPLEX [None]
  - HYPERTENSION [None]
  - NAUSEA [None]
